FAERS Safety Report 18819841 (Version 3)
Quarter: 2021Q2

REPORT INFORMATION
  Report Type: Report from Study
  Country: None (occurrence: IL)
  Receive Date: 20210202
  Receipt Date: 20210430
  Transmission Date: 20210717
  Serious: Yes (Hospitalization)
  Sender: FDA-Public Use
  Company Number: IL-ABBVIE-21K-082-3754811-00

PATIENT
  Age: 67 Year
  Sex: Male

DRUGS (2)
  1. DUODOPA [Suspect]
     Active Substance: CARBIDOPA\LEVODOPA
     Indication: PARKINSON^S DISEASE
     Route: 050
     Dates: start: 20140430
  2. DUODOPA [Suspect]
     Active Substance: CARBIDOPA\LEVODOPA
     Dosage: MD? 14.0; CD? (ML/H) 4.4; ED(ML)? 1.6
     Route: 050

REACTIONS (9)
  - Gastrointestinal haemorrhage [Unknown]
  - Small intestine ulcer [Unknown]
  - Gait disturbance [Unknown]
  - On and off phenomenon [Unknown]
  - Mobility decreased [Unknown]
  - Abdominal pain [Unknown]
  - Faeces discoloured [Unknown]
  - Therapeutic product effect decreased [Unknown]
  - Device dislocation [Recovered/Resolved]

NARRATIVE: CASE EVENT DATE: 202011
